FAERS Safety Report 5375528-0 (Version None)
Quarter: 2007Q2

REPORT INFORMATION
  Report Type: 
  Country: None (occurrence: None)
  Receive Date: 20070629
  Receipt Date: 20070618
  Transmission Date: 20071010
  Serious: Yes (Other)
  Sender: FDA-Public Use
  Company Number: US-PFIZER INC-2007050412

PATIENT
  Sex: Female
  Weight: 72.6 kg

DRUGS (1)
  1. SUTENT [Suspect]
     Indication: HEPATIC NEOPLASM MALIGNANT
     Dates: start: 20060801, end: 20070421

REACTIONS (1)
  - SWEAT GLAND INFECTION [None]
